FAERS Safety Report 10626871 (Version 2)
Quarter: 2014Q4

REPORT INFORMATION
  Report Type: Report from Study
  Country: TW (occurrence: TW)
  Receive Date: 20141204
  Receipt Date: 20141210
  Transmission Date: 20150529
  Serious: Yes (Death, Hospitalization)
  Sender: FDA-Public Use
  Company Number: TW-ABBVIE-14K-153-1315440-00

PATIENT
  Age: 70 Year
  Sex: Female
  Weight: 46 kg

DRUGS (1)
  1. HUMIRA [Suspect]
     Active Substance: ADALIMUMAB
     Indication: CROHN^S DISEASE
     Route: 058
     Dates: start: 20141001, end: 20141126

REACTIONS (6)
  - Pneumonia [Fatal]
  - Sepsis [Fatal]
  - Urinary tract infection [Unknown]
  - Multi-organ failure [Fatal]
  - Asthenia [Unknown]
  - Haematocrit decreased [Unknown]

NARRATIVE: CASE EVENT DATE: 20141128
